FAERS Safety Report 9164556 (Version 1)
Quarter: 2013Q1

REPORT INFORMATION
  Report Type: Spontaneous
  Country: US (occurrence: US)
  Receive Date: 20130315
  Receipt Date: 20130315
  Transmission Date: 20140127
  Serious: Yes (Hospitalization)
  Sender: FDA-Public Use
  Company Number: PHEH2013US005984

PATIENT
  Sex: Male

DRUGS (1)
  1. MYFORTIC [Suspect]
     Dosage: 180 MG, BID
     Route: 048

REACTIONS (1)
  - Renal failure [Unknown]
